FAERS Safety Report 8559001-4 (Version None)
Quarter: 2012Q3

REPORT INFORMATION
  Report Type: 
  Country: None (occurrence: None)
  Receive Date: 20120802
  Receipt Date: 20120723
  Transmission Date: 20120928
  Serious: Yes (Other)
  Sender: FDA-Public Use
  Company Number: IT-BIOGENIDEC-2012BI025793

PATIENT
  Age: 36 Year
  Sex: Female

DRUGS (3)
  1. RIVORIL (LORAZEPAM) [Concomitant]
     Indication: PARTIAL SEIZURES
     Dates: start: 20110601
  2. TYSABRI [Suspect]
     Indication: RELAPSING-REMITTING MULTIPLE SCLEROSIS
     Route: 042
     Dates: start: 20090804, end: 20101213
  3. TYSABRI [Suspect]
     Route: 042
     Dates: start: 20110427

REACTIONS (2)
  - PARTIAL SEIZURES [None]
  - STRESS [None]
